FAERS Safety Report 24800478 (Version 2)
Quarter: 2025Q1

REPORT INFORMATION
  Report Type: Spontaneous
  Country: US (occurrence: US)
  Receive Date: 20250102
  Receipt Date: 20250113
  Transmission Date: 20250409
  Serious: Yes (Hospitalization, Other)
  Sender: TEVA
  Company Number: US-TEVA-VS-3279714

PATIENT
  Age: 67 Year
  Sex: Female

DRUGS (6)
  1. NIFEDIPINE [Suspect]
     Active Substance: NIFEDIPINE
     Indication: Hypertension
     Route: 065
  2. POTASSIUM [Concomitant]
     Active Substance: POTASSIUM
     Indication: Hypokalaemia
     Route: 065
  3. TESTOSTERONE [Concomitant]
     Active Substance: TESTOSTERONE
     Indication: Product used for unknown indication
     Route: 061
  4. GLYCYRRHIZA GLABRA\HERBALS [Suspect]
     Active Substance: GLYCYRRHIZA GLABRA\HERBALS
     Indication: Constipation
     Route: 065
  5. HYDROCHLOROTHIAZIDE [Suspect]
     Active Substance: HYDROCHLOROTHIAZIDE
     Indication: Hypertension
     Route: 065
  6. TOPIRAMATE [Suspect]
     Active Substance: TOPIRAMATE
     Indication: Migraine
     Route: 065

REACTIONS (5)
  - Hypokalaemia [Recovered/Resolved]
  - Drug ineffective [Unknown]
  - Hypertension [Recovered/Resolved]
  - Electrocardiogram QT prolonged [Unknown]
  - Hyperaldosteronism [Recovering/Resolving]
